FAERS Safety Report 14587297 (Version 1)
Quarter: 2018Q1

REPORT INFORMATION
  Report Type: Spontaneous
  Country: US (occurrence: US)
  Receive Date: 20180228
  Receipt Date: 20180228
  Transmission Date: 20180509
  Serious: Yes (Other)
  Sender: FDA-Public Use
  Company Number: None

PATIENT
  Age: 70 Year
  Sex: Male

DRUGS (1)
  1. BUPIVACAINE HCL INJ [Suspect]
     Active Substance: BUPIVACAINE HYDROCHLORIDE
     Indication: KNEE ARTHROPLASTY
     Dates: start: 20180219, end: 20180219

REACTIONS (3)
  - Inadequate analgesia [None]
  - Anaesthetic complication [None]
  - Device malfunction [None]

NARRATIVE: CASE EVENT DATE: 20180219
